FAERS Safety Report 5348104-3 (Version None)
Quarter: 2007Q2

REPORT INFORMATION
  Report Type: 
  Country: None (occurrence: None)
  Receive Date: 20070606
  Receipt Date: 20070523
  Transmission Date: 20071010
  Serious: Yes (Hospitalization)
  Sender: FDA-Public Use
  Company Number: ES-AMGEN-US227095

PATIENT
  Sex: Male

DRUGS (3)
  1. ENBREL [Suspect]
     Indication: PSORIASIS
     Dosage: UNKNOWN
     Route: 058
     Dates: start: 20051001, end: 20070509
  2. METHOTREXATE SODIUM [Concomitant]
     Route: 048
     Dates: end: 20070509
  3. NIFEDIPINE [Concomitant]

REACTIONS (4)
  - LUNG ADENOCARCINOMA [None]
  - METASTASES TO BONE [None]
  - METASTASES TO LIVER [None]
  - PLEURAL EFFUSION [None]
